FAERS Safety Report 5057553-2 (Version None)
Quarter: 2006Q3

REPORT INFORMATION
  Report Type: 
  Country: None (occurrence: None)
  Receive Date: 20060721
  Receipt Date: 20051118
  Transmission Date: 20061208
  Serious: No
  Sender: FDA-Public Use
  Company Number: US-GLAXOSMITHKLINE-A0582910A

PATIENT
  Age: 74 Year
  Sex: Male

DRUGS (6)
  1. AVANDIA [Suspect]
     Route: 048
  2. GLUCOTROL [Concomitant]
  3. STARLIX [Concomitant]
  4. PRINIVIL [Concomitant]
  5. INSULIN [Concomitant]
  6. LIPITOR [Concomitant]

REACTIONS (1)
  - WEIGHT [None]
